FAERS Safety Report 8650809 (Version 2)
Quarter: 2012Q4

REPORT INFORMATION
  Report Type: Report from Study
  Country: JP (occurrence: JP)
  Receive Date: 20120705
  Receipt Date: 20121203
  Transmission Date: 20130627
  Serious: Yes (Death, Hospitalization)
  Sender: FDA-Public Use
  Company Number: JP-ACTELION-A-CH2012-67821

PATIENT
  Age: 66 Year
  Sex: Female
  Weight: 51.8 kg

DRUGS (13)
  1. TRACLEER [Suspect]
     Indication: PULMONARY HYPERTENSION
     Dosage: 62.5 mg, bid
     Route: 048
     Dates: start: 20120327, end: 20120402
  2. TRACLEER [Suspect]
     Dosage: 31.25 mg, bid
     Route: 048
     Dates: start: 20120320, end: 20120326
  3. TRACLEER [Suspect]
     Dosage: 93.75 mg, bid
     Route: 048
     Dates: start: 20120403, end: 20120408
  4. BERAPROST SODIUM [Concomitant]
  5. SILDENAFIL CITRATE [Concomitant]
  6. WARFARIN POTASSIUM [Concomitant]
  7. SPIRONOLACTONE [Concomitant]
  8. BENZBROMARONE [Concomitant]
  9. DIGOXIN [Concomitant]
  10. MAGNESIUM OXIDE [Concomitant]
  11. FAMOTIDINE [Concomitant]
  12. FUROSEMIDE [Concomitant]
  13. OXYGEN [Concomitant]

REACTIONS (5)
  - Cardiac failure [Fatal]
  - Pulmonary hypertension [Fatal]
  - Restlessness [Not Recovered/Not Resolved]
  - Weight increased [Fatal]
  - Oxygen saturation decreased [Fatal]
